FAERS Safety Report 15651443 (Version 2)
Quarter: 2020Q2

REPORT INFORMATION
  Report Type: Spontaneous
  Country: US (occurrence: US)
  Receive Date: 20181123
  Receipt Date: 20200602
  Transmission Date: 20200713
  Serious: No
  Sender: FDA-Public Use
  Company Number: US-SA-2018SA319119

PATIENT

DRUGS (14)
  1. TRIAMCINOLONE [Concomitant]
     Active Substance: TRIAMCINOLONE
  2. PREDNISONE. [Concomitant]
     Active Substance: PREDNISONE
  3. CELLCEPT [Concomitant]
     Active Substance: MYCOPHENOLATE MOFETIL\MYCOPHENOLATE MOFETIL HYDROCHLORIDE
  4. MIRVASO [Concomitant]
     Active Substance: BRIMONIDINE TARTRATE
  5. EUCRISA [Concomitant]
     Active Substance: CRISABOROLE
  6. DUPIXENT [Suspect]
     Active Substance: DUPILUMAB
     Indication: DERMATITIS ATOPIC
     Dosage: 300 MG, QOW
     Route: 058
     Dates: start: 20180227, end: 2018
  7. AVAR LS [Concomitant]
     Active Substance: SULFACETAMIDE SODIUM\SULFUR
  8. BETAMETHASONE. [Concomitant]
     Active Substance: BETAMETHASONE
  9. DESONIDE. [Concomitant]
     Active Substance: DESONIDE
  10. RESTASIS [Concomitant]
     Active Substance: CYCLOSPORINE
  11. DUPIXENT [Suspect]
     Active Substance: DUPILUMAB
     Dosage: 300 MG, QOW
     Route: 058
     Dates: start: 20180613
  12. DOXYCYCLA [Concomitant]
  13. LOTEMAX [Concomitant]
     Active Substance: LOTEPREDNOL ETABONATE
  14. SOOLANTRA [Concomitant]
     Active Substance: IVERMECTIN

REACTIONS (4)
  - Dermatitis atopic [Unknown]
  - Rash pruritic [Not Recovered/Not Resolved]
  - Rash [Not Recovered/Not Resolved]
  - Discomfort [Not Recovered/Not Resolved]

NARRATIVE: CASE EVENT DATE: 20181116
